FAERS Safety Report 7659585-4 (Version None)
Quarter: 2011Q3

REPORT INFORMATION
  Report Type: 
  Country: None (occurrence: None)
  Receive Date: 20110805
  Receipt Date: 20110722
  Transmission Date: 20111222
  Serious: Yes (Other)
  Sender: FDA-Public Use
  Company Number: US-JNJFOC-20110802206

PATIENT
  Age: 22 Year
  Sex: Female

DRUGS (2)
  1. EXTRA STRENGTH TYLENOL [Suspect]
     Indication: PRODUCT USED FOR UNKNOWN INDICATION
     Route: 065
  2. EXTRA STRENGTH TYLENOL [Suspect]
     Route: 065

REACTIONS (2)
  - DEPENDENCE [None]
  - ADVERSE EVENT [None]
